FAERS Safety Report 8241346-9 (Version None)
Quarter: 2012Q1

REPORT INFORMATION
  Report Type: 
  Country: None (occurrence: None)
  Receive Date: 20120328
  Receipt Date: 20120326
  Transmission Date: 20120608
  Serious: Yes (Death, Hospitalization, Other)
  Sender: FDA-Public Use
  Company Number: CZ-ABBOTT-12P-217-0918676-00

PATIENT
  Sex: Male
  Weight: 106 kg

DRUGS (18)
  1. DEGAN [Concomitant]
     Indication: PRODUCT USED FOR UNKNOWN INDICATION
  2. FUROSEMIDE [Concomitant]
     Indication: PRODUCT USED FOR UNKNOWN INDICATION
  3. OMNIC TOCAS [Concomitant]
     Indication: PRODUCT USED FOR UNKNOWN INDICATION
  4. INSULIN [Concomitant]
     Indication: PRODUCT USED FOR UNKNOWN INDICATION
  5. MAGNE B6 [Concomitant]
     Indication: PRODUCT USED FOR UNKNOWN INDICATION
  6. TORVACARD [Concomitant]
     Indication: PRODUCT USED FOR UNKNOWN INDICATION
  7. DETRALEX [Concomitant]
     Indication: PRODUCT USED FOR UNKNOWN INDICATION
  8. PANTOPRAZOLE [Concomitant]
     Indication: PRODUCT USED FOR UNKNOWN INDICATION
  9. ATROVENT [Concomitant]
     Indication: PRODUCT USED FOR UNKNOWN INDICATION
  10. ANOPYRIN [Concomitant]
     Indication: PRODUCT USED FOR UNKNOWN INDICATION
  11. THYREOTOM [Concomitant]
     Indication: PRODUCT USED FOR UNKNOWN INDICATION
  12. LOSARTAN POTASSIUM [Concomitant]
     Indication: PRODUCT USED FOR UNKNOWN INDICATION
  13. AFONILUM [Concomitant]
     Indication: PRODUCT USED FOR UNKNOWN INDICATION
  14. NITRENDIPIN [Concomitant]
     Indication: PRODUCT USED FOR UNKNOWN INDICATION
  15. ZEMPLAR [Suspect]
     Indication: PRODUCT USED FOR UNKNOWN INDICATION
  16. ENELBIN [Concomitant]
     Indication: PRODUCT USED FOR UNKNOWN INDICATION
  17. LEVEMIR [Concomitant]
     Indication: PRODUCT USED FOR UNKNOWN INDICATION
  18. ALLOPURINOL [Concomitant]
     Indication: PRODUCT USED FOR UNKNOWN INDICATION

REACTIONS (6)
  - PLEURAL EFFUSION [None]
  - CHRONIC OBSTRUCTIVE PULMONARY DISEASE [None]
  - PLEURAL FIBROSIS [None]
  - RENAL FUNCTION TEST ABNORMAL [None]
  - CARDIAC FAILURE CONGESTIVE [None]
  - VENTRICULAR FIBRILLATION [None]
